FAERS Safety Report 8394467-4 (Version None)
Quarter: 2012Q2

REPORT INFORMATION
  Report Type: 
  Country: None (occurrence: None)
  Receive Date: 20120530
  Receipt Date: 20110804
  Transmission Date: 20120825
  Serious: Yes (Other)
  Sender: FDA-Public Use
  Company Number: US-PFIZER INC-2011178647

PATIENT

DRUGS (1)
  1. CHANTIX [Suspect]
     Dosage: 0.5 MG, UNK

REACTIONS (3)
  - VOMITING [None]
  - PHARYNGEAL OEDEMA [None]
  - NIGHTMARE [None]
